FAERS Safety Report 25743231 (Version 2)
Quarter: 2025Q3

REPORT INFORMATION
  Report Type: Spontaneous
  Country: US (occurrence: US)
  Receive Date: 20250830
  Receipt Date: 20250917
  Transmission Date: 20251021
  Serious: No
  Sender: LUPIN
  Company Number: US-LUPIN PHARMACEUTICALS INC.-2025-07731

PATIENT
  Sex: Female
  Weight: 16.327 kg

DRUGS (2)
  1. CEPHALEXIN [Suspect]
     Active Substance: CEPHALEXIN
     Indication: Localised infection
     Dosage: UNK UNK, SINGLE
     Dates: start: 20250818, end: 20250818
  2. Zarbee^s naturals cough syrup + mucus [Concomitant]
     Indication: Lower respiratory tract infection
     Route: 065

REACTIONS (2)
  - Product storage error [Unknown]
  - No adverse event [Unknown]
